FAERS Safety Report 16522110 (Version 1)
Quarter: 2019Q3

REPORT INFORMATION
  Report Type: Spontaneous
  Country: GB (occurrence: GB)
  Receive Date: 20190702
  Receipt Date: 20190702
  Transmission Date: 20191004
  Serious: Yes (Other)
  Sender: FDA-Public Use
  Company Number: GB-MYLANLABS-2019M1060817

PATIENT
  Age: 73 Year
  Sex: Male

DRUGS (1)
  1. NAPROXEN. [Suspect]
     Active Substance: NAPROXEN
     Indication: PAIN
     Dosage: 1000 MILLIGRAM, QD
     Route: 048
     Dates: start: 20190107

REACTIONS (3)
  - Skin irritation [Unknown]
  - Increased tendency to bruise [Unknown]
  - Skin atrophy [Unknown]
